FAERS Safety Report 20091830 (Version 1)
Quarter: 2021Q4

REPORT INFORMATION
  Report Type: Spontaneous
  Country: US (occurrence: None)
  Receive Date: 20211119
  Receipt Date: 20211119
  Transmission Date: 20220303
  Serious: No
  Sender: FDA-Public Use
  Company Number: None

PATIENT
  Age: 51 Year
  Sex: Female
  Weight: 86 kg

DRUGS (23)
  1. BRAFTOVI [Suspect]
     Active Substance: ENCORAFENIB
     Indication: Malignant melanoma
     Dosage: FREQUENCY : DAILY;?
     Route: 048
     Dates: start: 20200831
  2. MEKTOVI [Suspect]
     Active Substance: BINIMETINIB
     Indication: Malignant melanoma
     Dosage: FREQUENCY : TWICE A DAY;?
     Route: 048
     Dates: start: 20200831
  3. ALBUTEROL SULFATE [Concomitant]
     Active Substance: ALBUTEROL SULFATE
  4. ELIQUIS [Concomitant]
     Active Substance: APIXABAN
  5. Azelastine 137mcg/act [Concomitant]
  6. BENZONATATE [Concomitant]
     Active Substance: BENZONATATE
  7. Butalbital-APAP-Caffeine 50-300-40mg [Concomitant]
  8. ZYRTEC [Concomitant]
     Active Substance: CETIRIZINE HYDROCHLORIDE
  9. Vitamin D 25mcg [Concomitant]
  10. LEXAPRO [Concomitant]
     Active Substance: ESCITALOPRAM OXALATE
  11. FAMOTIDINE [Concomitant]
     Active Substance: FAMOTIDINE
  12. Flonase 50mcg/act [Concomitant]
  13. Hydrocodone-Homatropine [Concomitant]
  14. ACETAMINOPHEN\HYDROCODONE BITARTRATE [Concomitant]
     Active Substance: ACETAMINOPHEN\HYDROCODONE BITARTRATE
  15. XIIDRA [Concomitant]
     Active Substance: LIFITEGRAST
  16. LORAZEPAM [Concomitant]
     Active Substance: LORAZEPAM
  17. MONTELUKAST [Concomitant]
     Active Substance: MONTELUKAST SODIUM
  18. ONDANSETRON [Concomitant]
     Active Substance: ONDANSETRON
  19. PANTOPRAZOLE SODIUM [Concomitant]
     Active Substance: PANTOPRAZOLE SODIUM
  20. RIZATRIPTAN [Concomitant]
     Active Substance: RIZATRIPTAN
  21. TRAMADOL [Concomitant]
     Active Substance: TRAMADOL
  22. TRIAMCINOLONE [Concomitant]
     Active Substance: TRIAMCINOLONE
  23. LOSARTAN [Concomitant]
     Active Substance: LOSARTAN

REACTIONS (1)
  - Anaemia [None]

NARRATIVE: CASE EVENT DATE: 20211118
